FAERS Safety Report 7318557-X (Version None)
Quarter: 2011Q1

REPORT INFORMATION
  Report Type: 
  Country: None (occurrence: None)
  Receive Date: 20110217
  Receipt Date: 20110217
  Transmission Date: 20110831
  Serious: No
  Sender: FDA-Public Use
  Company Number: None

PATIENT
  Age: 34 Year
  Sex: Male
  Weight: 129.2752 kg

DRUGS (3)
  1. PAROXETINE HCL [Suspect]
     Indication: ANXIETY
     Dosage: 1 TABLET DAILY PO
     Route: 048
     Dates: start: 20110123, end: 20110126
  2. PAROXETINE HCL [Suspect]
     Indication: DEPRESSION
     Dosage: 1 TABLET DAILY PO
     Route: 048
     Dates: start: 20110123, end: 20110126
  3. PAXIL [Concomitant]

REACTIONS (6)
  - EXCESSIVE EYE BLINKING [None]
  - MUSCLE CONTRACTIONS INVOLUNTARY [None]
  - ACTIVITIES OF DAILY LIVING IMPAIRED [None]
  - IMPAIRED DRIVING ABILITY [None]
  - SPEECH DISORDER [None]
  - TREMOR [None]
